FAERS Safety Report 5120580-0 (Version None)
Quarter: 2006Q4

REPORT INFORMATION
  Report Type: 
  Country: None (occurrence: None)
  Receive Date: 20061002
  Receipt Date: 20060915
  Transmission Date: 20070319
  Serious: Yes (Hospitalization)
  Sender: FDA-Public Use
  Company Number: NL200608002948

PATIENT
  Age: 80 Year
  Sex: Female
  Weight: 40 kg

DRUGS (5)
  1. FORTEO [Suspect]
     Indication: OSTEOPOROSIS
     Dosage: 20, SUBCUTANEOUS
     Route: 058
     Dates: start: 20050606
  2. CALCIUM (CALCIUM) [Concomitant]
  3. VITAMIN D [Concomitant]
  4. TRAMADOL HCL [Concomitant]
  5. TEGRETOL [Concomitant]

REACTIONS (7)
  - CONTUSION [None]
  - DEHYDRATION [None]
  - FALL [None]
  - MALAISE [None]
  - PAIN IN EXTREMITY [None]
  - RESTLESS LEGS SYNDROME [None]
  - URINARY TRACT INFECTION [None]
